FAERS Safety Report 20942181 (Version 1)
Quarter: 2022Q2

REPORT INFORMATION
  Report Type: Spontaneous
  Country: ES (occurrence: ES)
  Receive Date: 20220610
  Receipt Date: 20220610
  Transmission Date: 20220721
  Serious: Yes (Hospitalization)
  Sender: FDA-Public Use
  Company Number: None

PATIENT
  Age: 87 Year
  Sex: Female

DRUGS (5)
  1. OMEPRAZOLE [Interacting]
     Active Substance: OMEPRAZOLE
     Dosage: OMEPRAZOL (2141A), 20MG, FREQUENCY TIME 24HRS, DURATION 1DAYS
     Route: 048
     Dates: start: 20220223, end: 20220223
  2. PAROXETINE [Interacting]
     Active Substance: PAROXETINE
     Dosage: DURATION 1DAYS, PAROXETINE (2586A)
     Route: 048
     Dates: start: 20220223, end: 20220223
  3. DOXAZOSIN [Interacting]
     Active Substance: DOXAZOSIN MESYLATE
     Dosage: DOXAZOSINE (2387A), 2MG, FREQUENCY TIME 24HRS, DURATION 1DAYS
     Route: 048
     Dates: start: 20220223, end: 20220223
  4. AMLODIPINE [Interacting]
     Active Substance: AMLODIPINE BESYLATE
     Dosage: 10MG, AMLODIPINE (2503A), FREQUENCY TIME 24HRS, DURATION 1DAYS
     Route: 048
     Dates: start: 20220223, end: 20220223
  5. METFORMIN HYDROCHLORIDE\VILDAGLIPTIN [Interacting]
     Active Substance: METFORMIN HYDROCHLORIDE\VILDAGLIPTIN
     Dosage: DURATION 1DAYS
     Route: 048
     Dates: start: 20220223, end: 20220223

REACTIONS (4)
  - Cardiac failure congestive [Recovered/Resolved]
  - Respiratory failure [Recovered/Resolved]
  - Wrong patient [Recovered/Resolved]
  - Drug interaction [Unknown]

NARRATIVE: CASE EVENT DATE: 20220223
